FAERS Safety Report 16907687 (Version 4)
Quarter: 2020Q2

REPORT INFORMATION
  Report Type: Report from Study
  Country: DE (occurrence: DE)
  Receive Date: 20191011
  Receipt Date: 20200429
  Transmission Date: 20200713
  Serious: Yes (Hospitalization)
  Sender: FDA-Public Use
  Company Number: DE-ROCHE-2429892

PATIENT
  Age: 78 Year
  Sex: Male
  Weight: 72 kg

DRUGS (13)
  1. PREDNICARBATE. [Concomitant]
     Active Substance: PREDNICARBATE
     Route: 065
     Dates: start: 20190602
  2. VEMURAFENIB. [Suspect]
     Active Substance: VEMURAFENIB
     Indication: METASTATIC MALIGNANT MELANOMA
     Dosage: ON DAY 1-28 OF A 28-DAY-CYCLE?DATE OF LAST DOSE PRIOR TO SAE: 09/OCT/2019
     Route: 048
     Dates: start: 20190523, end: 20190813
  3. VEMURAFENIB. [Suspect]
     Active Substance: VEMURAFENIB
     Indication: MALIGNANT MELANOMA
     Route: 048
     Dates: start: 20190822, end: 20190905
  4. L-THYROXINE [LEVOTHYROXINE] [Concomitant]
     Active Substance: LEVOTHYROXINE
     Route: 065
     Dates: start: 20180101
  5. COBIMETINIB. [Suspect]
     Active Substance: COBIMETINIB
     Indication: METASTATIC MALIGNANT MELANOMA
     Dosage: ON DAY 1-21 OF A 28-DAY-CYCLE?DATE OF LAST DOSE PRIOR TO SAE: 03/SEP2019
     Route: 048
     Dates: start: 20190523, end: 20190813
  6. CANDESARTAN. [Concomitant]
     Active Substance: CANDESARTAN
     Route: 065
     Dates: start: 20190815
  7. TORASEMID [Concomitant]
     Active Substance: TORSEMIDE
     Route: 065
     Dates: start: 20190101
  8. LEVETIRACETAM. [Concomitant]
     Active Substance: LEVETIRACETAM
     Route: 065
     Dates: start: 20190101
  9. IODIDE [Concomitant]
     Active Substance: IODINE
     Route: 065
     Dates: start: 20190101
  10. COBIMETINIB. [Suspect]
     Active Substance: COBIMETINIB
     Indication: MALIGNANT MELANOMA
     Dosage: ON DAY 1-21 OF A 28-DAY-CYCLE
     Route: 048
     Dates: start: 20190822, end: 20190905
  11. VEMURAFENIB. [Suspect]
     Active Substance: VEMURAFENIB
     Route: 048
     Dates: start: 20190906, end: 20190911
  12. AMLODIPINE [Concomitant]
     Active Substance: AMLODIPINE BESYLATE
     Route: 065
     Dates: start: 20190101
  13. COBIMETINIB. [Suspect]
     Active Substance: COBIMETINIB
     Dosage: ON DAY 1-21 OF A 28-DAY-CYCLE
     Route: 048
     Dates: start: 20190906, end: 20190911

REACTIONS (1)
  - Pneumonitis [Recovered/Resolved]

NARRATIVE: CASE EVENT DATE: 20190717
